FAERS Safety Report 21667469 (Version 1)
Quarter: 2022Q4

REPORT INFORMATION
  Report Type: Spontaneous
  Country: SE (occurrence: SE)
  Receive Date: 20221201
  Receipt Date: 20221201
  Transmission Date: 20230113
  Serious: Yes (Death)
  Sender: FDA-Public Use
  Company Number: None

PATIENT
  Age: 38 Year
  Sex: Male
  Weight: 100 kg

DRUGS (13)
  1. QUETIAPINE [Suspect]
     Active Substance: QUETIAPINE
     Indication: Product used for unknown indication
     Dosage: 7 TABLETS AT 20.00 FOR SLEEP. STRENGTH 200 MG
     Dates: start: 20220324
  2. Novalucol [Concomitant]
     Dosage: AS REQUIRED
     Dates: start: 20210506
  3. PROPIOMAZINE [Concomitant]
     Active Substance: PROPIOMAZINE
     Dosage: 4 PC AT 22, STRENGTH  25 MG
     Dates: start: 20220421
  4. GUANFACINE HYDROCHLORIDE [Concomitant]
     Active Substance: GUANFACINE HYDROCHLORIDE
     Dosage: 1 PC AT 08 ?2 PC AT 20, STRENGTH 2 MG
     Dates: start: 20220511
  5. MELATONIN [Concomitant]
     Active Substance: MELATONIN
     Dosage: 2 PC AT 20
     Dates: start: 20220407
  6. TRIMEPRAZINE [Concomitant]
     Active Substance: TRIMEPRAZINE
     Dosage: AS REQUIRED, STRENGTH 20 MG
     Dates: start: 20220804
  7. IBUPROFEN [Concomitant]
     Active Substance: IBUPROFEN
     Dosage: AS REQUIRED, STRENGTH 400 MG
     Dates: start: 20210621
  8. OLANZAPINE [Concomitant]
     Active Substance: OLANZAPINE
     Dosage: STRENGTH 5 MG, 1 PC AT 20
     Dates: start: 20220407
  9. SERTRALINE [Concomitant]
     Active Substance: SERTRALINE HYDROCHLORIDE
     Dosage: 5 PC AT 08, STRENGTH 100 MG
     Dates: start: 20220418
  10. ACETAMINOPHEN [Concomitant]
     Active Substance: ACETAMINOPHEN
     Dosage: AS REQUIRED, STRENGTH 500 MG
     Dates: start: 20210511
  11. NALOXONE HYDROCHLORIDE [Concomitant]
     Active Substance: NALOXONE HYDROCHLORIDE
     Dosage: STRENGTH 1.8 MG, AS REQUIRED
     Dates: start: 20210503
  12. GUANFACINE HYDROCHLORIDE [Concomitant]
     Active Substance: GUANFACINE HYDROCHLORIDE
     Dosage: 1 PC AT 08?1 PC AT 20, STRENGTH 1 MG
     Dates: start: 20220609
  13. OLANZAPINE [Concomitant]
     Active Substance: OLANZAPINE
     Dosage: STRENGTH 10 MG, 2 PC AT 20
     Dates: start: 20210503

REACTIONS (1)
  - Pulmonary embolism [Fatal]

NARRATIVE: CASE EVENT DATE: 20220823
